FAERS Safety Report 25064067 (Version 1)
Quarter: 2025Q1

REPORT INFORMATION
  Report Type: Spontaneous
  Country: US (occurrence: US)
  Receive Date: 20250311
  Receipt Date: 20250311
  Transmission Date: 20250408
  Serious: Yes (Death, Hospitalization)
  Sender: ALEXION PHARMACEUTICALS
  Company Number: US-ASTRAZENECA-202502USA027662US

PATIENT

DRUGS (2)
  1. SOLIRIS [Suspect]
     Active Substance: ECULIZUMAB
     Indication: Atypical haemolytic uraemic syndrome
     Route: 065
  2. ULTOMIRIS [Suspect]
     Active Substance: RAVULIZUMAB-CWVZ
     Route: 065

REACTIONS (1)
  - Laboratory test abnormal [Fatal]
